FAERS Safety Report 12315812 (Version 3)
Quarter: 2016Q3

REPORT INFORMATION
  Report Type: Report from Study
  Country: US (occurrence: US)
  Receive Date: 20160428
  Receipt Date: 20160809
  Transmission Date: 20161109
  Serious: Yes (Death, Life-Threatening, Hospitalization)
  Sender: FDA-Public Use
  Company Number: US-EXELIXIS-CABO-16006041

PATIENT
  Age: 47 Year
  Sex: Male

DRUGS (20)
  1. KLOR-CON [Concomitant]
     Active Substance: POTASSIUM CHLORIDE
  2. TAMSULOSIN [Concomitant]
     Active Substance: TAMSULOSIN
  3. COMETRIQ [Suspect]
     Active Substance: CABOZANTINIB S-MALATE
     Dosage: 60 MG, QD
     Route: 048
     Dates: start: 2016, end: 20160607
  4. ASPIRIN. [Concomitant]
     Active Substance: ASPIRIN
  5. VITAMIN D3 [Concomitant]
     Active Substance: CHOLECALCIFEROL
  6. ALPHAGEN [Concomitant]
  7. COMETRIQ [Suspect]
     Active Substance: CABOZANTINIB S-MALATE
     Indication: RENAL CANCER
     Dosage: 60 MG, QD
     Route: 048
     Dates: start: 20160126, end: 20160420
  8. OXYCODONE [Concomitant]
     Active Substance: OXYCODONE
  9. COUMADIN [Concomitant]
     Active Substance: WARFARIN SODIUM
  10. AVODART [Concomitant]
     Active Substance: DUTASTERIDE
  11. VITAMIN E [Concomitant]
     Active Substance: .ALPHA.-TOCOPHEROL
  12. XARELTO [Concomitant]
     Active Substance: RIVAROXABAN
  13. AFINITOR [Concomitant]
     Active Substance: EVEROLIMUS
  14. OPDIVO [Concomitant]
     Active Substance: NIVOLUMAB
  15. IRON [Concomitant]
     Active Substance: IRON
  16. VOTRIENT [Concomitant]
     Active Substance: PAZOPANIB HYDROCHLORIDE
  17. MEGESTROL [Concomitant]
     Active Substance: MEGESTROL
  18. MARINEX [Concomitant]
     Dosage: UNK
     Dates: end: 20160607
  19. VITAMIN B12 [Concomitant]
     Active Substance: CYANOCOBALAMIN
  20. PLAVIX [Concomitant]
     Active Substance: CLOPIDOGREL BISULFATE

REACTIONS (4)
  - Urinary tract infection [Unknown]
  - Metastases to central nervous system [Fatal]
  - Rash [Unknown]
  - Off label use [Unknown]

NARRATIVE: CASE EVENT DATE: 20160607
